FAERS Safety Report 9658059 (Version 2)
Quarter: 2013Q4

REPORT INFORMATION
  Report Type: Spontaneous
  Country: US (occurrence: US)
  Receive Date: 20131030
  Receipt Date: 20131118
  Transmission Date: 20140711
  Serious: Yes (Hospitalization, Other)
  Sender: FDA-Public Use
  Company Number: US-GILEAD-2013-0086491

PATIENT
  Age: 52 Year
  Sex: Female

DRUGS (6)
  1. LETAIRIS [Suspect]
     Indication: PULMONARY HYPERTENSION
     Dosage: 5 MG, UNK
     Route: 048
     Dates: start: 20090304
  2. LETAIRIS [Suspect]
     Indication: DRUG ABUSE
  3. LETAIRIS [Suspect]
     Indication: DIASTOLIC DYSFUNCTION
  4. LETAIRIS [Suspect]
     Indication: EMPHYSEMA
  5. LETAIRIS [Suspect]
     Indication: PULMONARY HYPERTENSION
  6. TYVASO [Concomitant]

REACTIONS (1)
  - Pneumonia [Recovered/Resolved]
